FAERS Safety Report 8397907-X (Version None)
Quarter: 2012Q2

REPORT INFORMATION
  Report Type: 
  Country: None (occurrence: None)
  Receive Date: 20120531
  Receipt Date: 20120528
  Transmission Date: 20120825
  Serious: No
  Sender: FDA-Public Use
  Company Number: PHHY2011JP64879

PATIENT
  Age: 71 Year
  Sex: Female

DRUGS (3)
  1. TASIGNA [Suspect]
     Indication: CHRONIC MYELOID LEUKAEMIA
     Dosage: 800 MG, DAILY
     Route: 048
     Dates: start: 20110119
  2. LASIX [Concomitant]
     Dosage: 40 MG, UNK
     Route: 048
     Dates: start: 20110124, end: 20110606
  3. TASIGNA [Suspect]
     Dosage: 400 MG, DAILY
     Route: 048
     Dates: start: 20110228

REACTIONS (5)
  - GLUCOSE TOLERANCE IMPAIRED [None]
  - ACNE [None]
  - FLUID RETENTION [None]
  - PLEURAL EFFUSION [None]
  - ELECTROCARDIOGRAM QT PROLONGED [None]
